FAERS Safety Report 10660014 (Version 1)
Quarter: 2014Q4

REPORT INFORMATION
  Report Type: Spontaneous
  Country: US (occurrence: US)
  Receive Date: 20141217
  Receipt Date: 20141217
  Transmission Date: 20150529
  Serious: Yes (Other)
  Sender: FDA-Public Use
  Company Number: US-PFIZER INC-2014343640

PATIENT
  Age: 54 Year
  Sex: Female
  Weight: 52 kg

DRUGS (3)
  1. LYRICA [Suspect]
     Active Substance: PREGABALIN
     Indication: NERVE INJURY
     Dosage: UNK
     Dates: start: 2008, end: 2012
  2. PROZAC [Concomitant]
     Active Substance: FLUOXETINE HYDROCHLORIDE
     Indication: DEPRESSION
     Dosage: UNK
  3. XANAX [Concomitant]
     Active Substance: ALPRAZOLAM
     Indication: DEPRESSION

REACTIONS (6)
  - Pain in extremity [Unknown]
  - Muscle spasms [Unknown]
  - Back pain [Unknown]
  - Mental impairment [Unknown]
  - Foot deformity [Unknown]
  - Panic attack [Unknown]
